FAERS Safety Report 6154980-7 (Version None)
Quarter: 2009Q2

REPORT INFORMATION
  Report Type: 
  Country: None (occurrence: None)
  Receive Date: 20090410
  Receipt Date: 20090327
  Transmission Date: 20091009
  Serious: Yes (Hospitalization)
  Sender: FDA-Public Use
  Company Number: IPS_01558_2009

PATIENT
  Sex: Male

DRUGS (1)
  1. APO-GO (APO-GO - APOMORPHINE HYDROCHLORIDE) (NOT SPECIFIED) [Suspect]
     Indication: DRUG USE FOR UNKNOWN INDICATION
     Dosage: DF, FOR SUBCUTANEOUS
     Route: 058

REACTIONS (5)
  - ABSCESS DRAINAGE [None]
  - C-REACTIVE PROTEIN INCREASED [None]
  - INJECTION SITE ERYTHEMA [None]
  - INJECTION SITE SWELLING [None]
  - WHITE BLOOD CELL COUNT INCREASED [None]
